FAERS Safety Report 7837963-8 (Version None)
Quarter: 2011Q4

REPORT INFORMATION
  Report Type: 
  Country: None (occurrence: None)
  Receive Date: 20111024
  Receipt Date: 20110711
  Transmission Date: 20120403
  Serious: No
  Sender: FDA-Public Use
  Company Number: US-ABBOTT-11P-163-0838309-00

PATIENT
  Sex: Female

DRUGS (5)
  1. LUPRON DEPOT [Suspect]
     Route: 030
     Dates: start: 20110201, end: 20110201
  2. IBUPROFEN [Concomitant]
     Indication: PAIN
  3. LUPRON DEPOT [Suspect]
     Route: 030
     Dates: start: 20110606
  4. LUPRON DEPOT [Suspect]
     Indication: PRODUCT USED FOR UNKNOWN INDICATION
  5. LUPRON DEPOT [Suspect]
     Indication: UTERINE LEIOMYOMA
     Route: 030
     Dates: start: 20110101, end: 20110101

REACTIONS (4)
  - SENSITIVITY OF TEETH [None]
  - NIGHT SWEATS [None]
  - HOT FLUSH [None]
  - ORAL HERPES [None]
